FAERS Safety Report 4842888-6 (Version None)
Quarter: 2005Q4

REPORT INFORMATION
  Report Type: 
  Country: None (occurrence: None)
  Receive Date: 20051201
  Receipt Date: 20051122
  Transmission Date: 20060501
  Serious: Yes (Other)
  Sender: FDA-Public Use
  Company Number: PHBS2005GR17429

PATIENT
  Age: 35 Year
  Sex: Female

DRUGS (1)
  1. TRILEPTAL [Suspect]
     Dosage: 900 MG/D
     Route: 048

REACTIONS (2)
  - ANAEMIA MEGALOBLASTIC [None]
  - VITAMIN B12 DECREASED [None]
